FAERS Safety Report 7596888-6 (Version None)
Quarter: 2011Q3

REPORT INFORMATION
  Report Type: 
  Country: None (occurrence: None)
  Receive Date: 20110708
  Receipt Date: 20110701
  Transmission Date: 20111222
  Serious: Yes (Hospitalization, Other)
  Sender: FDA-Public Use
  Company Number: FR-SANOFI-AVENTIS-2011SA041775

PATIENT
  Age: 90 Year
  Sex: Male

DRUGS (6)
  1. ARCOXIA [Concomitant]
     Route: 065
  2. FUROSEMIDE [Concomitant]
     Route: 065
  3. EBASTINE [Concomitant]
     Route: 065
     Dates: end: 20110124
  4. NOOTROPYL [Concomitant]
     Route: 065
  5. FERROUS SULFATE TAB [Concomitant]
     Route: 065
  6. ALFUZOSIN HCL [Suspect]
     Route: 048
     Dates: start: 20110119, end: 20110124

REACTIONS (1)
  - CONFUSIONAL STATE [None]
